FAERS Safety Report 9080628 (Version 2)
Quarter: 2013Q2

REPORT INFORMATION
  Report Type: Spontaneous
  Country: UY (occurrence: UY)
  Receive Date: 20130130
  Receipt Date: 20130418
  Transmission Date: 20140414
  Serious: Yes (Hospitalization, Other)
  Sender: FDA-Public Use
  Company Number: UY-ABBOTT-13P-168-1039559-00

PATIENT
  Sex: Male

DRUGS (4)
  1. KALETRA [Suspect]
     Indication: HIV INFECTION
     Dates: start: 201209
  2. TENOFOVIR [Concomitant]
     Indication: HIV INFECTION
     Dates: start: 201209
  3. LAMIVUDINE [Concomitant]
     Indication: HIV INFECTION
     Dates: start: 201209
  4. BACTRIM [Concomitant]
     Indication: PROPHYLAXIS AGAINST HIV INFECTION
     Dates: start: 201209

REACTIONS (8)
  - Bile duct obstruction [Unknown]
  - Immune reconstitution inflammatory syndrome [Unknown]
  - Jaundice [Recovering/Resolving]
  - Weight decreased [Recovering/Resolving]
  - Hepatic enzyme increased [Recovering/Resolving]
  - Eosinophilia [Unknown]
  - Cholelithiasis [Unknown]
  - Pruritus [Not Recovered/Not Resolved]
